APPROVED DRUG PRODUCT: GABAPENTIN
Active Ingredient: GABAPENTIN
Strength: 300MG
Dosage Form/Route: TABLET;ORAL
Application: A077894 | Product #002
Applicant: APOTEX INC
Approved: Oct 10, 2006 | RLD: No | RS: No | Type: DISCN